FAERS Safety Report 12167062 (Version 3)
Quarter: 2016Q4

REPORT INFORMATION
  Report Type: Report from Study
  Country: JP (occurrence: JP)
  Receive Date: 20160310
  Receipt Date: 20161018
  Transmission Date: 20170207
  Serious: Yes (Hospitalization, Other)
  Sender: FDA-Public Use
  Company Number: JP-AMGEN-JPNNI2016028742

PATIENT
  Age: 70 Year
  Sex: Female

DRUGS (5)
  1. DARBEPOETIN ALFA [Suspect]
     Active Substance: DARBEPOETIN ALFA
     Dosage: UNK
     Route: 042
     Dates: start: 20151208, end: 20151219
  2. DARBEPOETIN ALFA [Suspect]
     Active Substance: DARBEPOETIN ALFA
     Dosage: UNK
     Route: 042
     Dates: start: 20150929, end: 20151106
  3. DARBEPOETIN ALFA [Suspect]
     Active Substance: DARBEPOETIN ALFA
     Indication: PRODUCT USED FOR UNKNOWN INDICATION
     Dosage: UNK
     Route: 042
     Dates: start: 20150804, end: 20150825
  4. DARBEPOETIN ALFA [Suspect]
     Active Substance: DARBEPOETIN ALFA
     Dosage: UNK
     Route: 042
     Dates: start: 20150915, end: 20150922
  5. DARBEPOETIN ALFA [Suspect]
     Active Substance: DARBEPOETIN ALFA
     Dosage: UNK
     Route: 042
     Dates: start: 20151110, end: 20151204

REACTIONS (6)
  - Hospitalisation [Recovering/Resolving]
  - Arteriovenous fistula site complication [Recovering/Resolving]
  - Diabetic retinopathy [Unknown]
  - Arteriovenous fistula site complication [Recovering/Resolving]
  - Arteriovenous fistula site complication [Recovering/Resolving]
  - Diabetic retinopathy [Unknown]

NARRATIVE: CASE EVENT DATE: 20150916
